FAERS Safety Report 7063689-7 (Version None)
Quarter: 2010Q4

REPORT INFORMATION
  Report Type: 
  Country: None (occurrence: None)
  Receive Date: 20101026
  Receipt Date: 20101013
  Transmission Date: 20110411
  Serious: Yes (Hospitalization)
  Sender: FDA-Public Use
  Company Number: BR-US-EMD SERONO, INC.-7022396

PATIENT
  Sex: Female

DRUGS (1)
  1. REBIF [Suspect]
     Indication: PRIMARY PROGRESSIVE MULTIPLE SCLEROSIS
     Route: 058
     Dates: start: 20051111, end: 20100905

REACTIONS (6)
  - CONVULSION [None]
  - DRUG HYPERSENSITIVITY [None]
  - HYPERTENSION [None]
  - OFF LABEL USE [None]
  - RENAL DISORDER [None]
  - RENAL IMPAIRMENT [None]
